FAERS Safety Report 7215674-X (Version None)
Quarter: 2011Q1

REPORT INFORMATION
  Report Type: 
  Country: None (occurrence: None)
  Receive Date: 20110104
  Receipt Date: 20110104
  Transmission Date: 20110831
  Serious: Yes (Other)
  Sender: FDA-Public Use
  Company Number: None

PATIENT
  Sex: Male
  Weight: 115.6672 kg

DRUGS (2)
  1. FLUOXETINE [Suspect]
     Indication: MAJOR DEPRESSION
     Dosage: 20 MG QAM PO
     Route: 048
     Dates: start: 20100101, end: 20101231
  2. FLUOXETINE [Suspect]
     Indication: MAJOR DEPRESSION
     Dosage: 20 MG QAM PO
     Route: 048
     Dates: start: 20110101

REACTIONS (10)
  - DYSPNOEA [None]
  - IMPULSIVE BEHAVIOUR [None]
  - ANXIETY [None]
  - AGGRESSION [None]
  - CHOKING SENSATION [None]
  - IRRITABILITY [None]
  - SLEEP DISORDER [None]
  - WEIGHT INCREASED [None]
  - FATIGUE [None]
  - LIBIDO DECREASED [None]
